FAERS Safety Report 5296804-6 (Version None)
Quarter: 2007Q2

REPORT INFORMATION
  Report Type: 
  Country: None (occurrence: None)
  Receive Date: 20070413
  Receipt Date: 20070402
  Transmission Date: 20071010
  Serious: Yes (Other)
  Sender: FDA-Public Use
  Company Number: US-PFIZER INC-2007027317

PATIENT
  Sex: Male
  Weight: 94.8 kg

DRUGS (5)
  1. CHANTIX [Suspect]
     Indication: SMOKING CESSATION THERAPY
  2. KLONOPIN [Concomitant]
     Indication: ANXIETY
  3. LEXAPRO [Concomitant]
  4. BACLOFEN [Concomitant]
  5. PERCOCET [Concomitant]

REACTIONS (5)
  - ABASIA [None]
  - CONFUSIONAL STATE [None]
  - DISORIENTATION [None]
  - DRUG WITHDRAWAL SYNDROME [None]
  - HYPOAESTHESIA [None]
